FAERS Safety Report 7658993-5 (Version None)
Quarter: 2011Q3

REPORT INFORMATION
  Report Type: 
  Country: None (occurrence: None)
  Receive Date: 20110805
  Receipt Date: 20110722
  Transmission Date: 20111222
  Serious: Yes (Hospitalization, Other)
  Sender: FDA-Public Use
  Company Number: US-ELI_LILLY_AND_COMPANY-US201012002057

PATIENT
  Age: 68 Year
  Sex: Female

DRUGS (2)
  1. FORTEO [Suspect]
     Dosage: 20 UG, UNKNOWN
     Dates: end: 20110713
  2. FORTEO [Suspect]
     Dosage: 20 UG, UNKNOWN

REACTIONS (6)
  - FALL [None]
  - SPINAL FRACTURE [None]
  - ROAD TRAFFIC ACCIDENT [None]
  - PAIN [None]
  - LOSS OF CONSCIOUSNESS [None]
  - COMPRESSION FRACTURE [None]
